FAERS Safety Report 19372286 (Version 1)
Quarter: 2021Q2

REPORT INFORMATION
  Report Type: Spontaneous
  Country: US (occurrence: US)
  Receive Date: 20210603
  Receipt Date: 20210603
  Transmission Date: 20210717
  Serious: Yes (Other)
  Sender: FDA-Public Use
  Company Number: None

PATIENT
  Age: 63 Year
  Sex: Male
  Weight: 74.25 kg

DRUGS (1)
  1. PREDNISOLONE ACETATE OPHTHALMIC SUSPENSION 1% , [Suspect]
     Active Substance: PREDNISOLONE ACETATE
     Indication: KERATECTOMY
     Route: 047

REACTIONS (2)
  - Fatigue [None]
  - Feeling abnormal [None]

NARRATIVE: CASE EVENT DATE: 20210517
